FAERS Safety Report 12683570 (Version 1)
Quarter: 2016Q3

REPORT INFORMATION
  Report Type: Spontaneous
  Country: US (occurrence: None)
  Receive Date: 20160824
  Receipt Date: 20160824
  Transmission Date: 20161109
  Serious: No
  Sender: FDA-Public Use
  Company Number: None

PATIENT
  Age: 62 Year
  Sex: Female

DRUGS (6)
  1. ZANTAC [Concomitant]
     Active Substance: RANITIDINE HYDROCHLORIDE
  2. HARVONI [Suspect]
     Active Substance: LEDIPASVIR\SOFOSBUVIR
     Indication: HEPATITIS C
     Dosage: 90-400MG DAILY PO
     Route: 048
     Dates: start: 20160802
  3. LOPRESSOR [Concomitant]
     Active Substance: METOPROLOL TARTRATE
  4. OMEPRAZOLE. [Concomitant]
     Active Substance: OMEPRAZOLE
  5. METHADONE [Concomitant]
     Active Substance: METHADONE HYDROCHLORIDE
  6. CALTRATE +D [Concomitant]

REACTIONS (3)
  - Toothache [None]
  - Arthralgia [None]
  - Headache [None]

NARRATIVE: CASE EVENT DATE: 201608
